FAERS Safety Report 6184690-1 (Version None)
Quarter: 2009Q2

REPORT INFORMATION
  Report Type: 
  Country: None (occurrence: None)
  Receive Date: 20090508
  Receipt Date: 20090501
  Transmission Date: 20091009
  Serious: Yes (Other)
  Sender: FDA-Public Use
  Company Number: US-JNJCH-2009012273

PATIENT
  Sex: Male

DRUGS (1)
  1. BENGAY MUSCLE PAIN ULTRA STRENGTH [Suspect]
     Indication: MYALGIA
     Dosage: TEXT:UNSPECIFIED
     Route: 061

REACTIONS (2)
  - DRUG INEFFECTIVE [None]
  - OEDEMA PERIPHERAL [None]
